FAERS Safety Report 24330390 (Version 2)
Quarter: 2024Q4

REPORT INFORMATION
  Report Type: Spontaneous
  Country: US (occurrence: US)
  Receive Date: 20240918
  Receipt Date: 20241009
  Transmission Date: 20250115
  Serious: Yes (Death, Life-Threatening, Other)
  Sender: BRISTOL MYERS SQUIBB
  Company Number: US-BRISTOL-MYERS SQUIBB COMPANY-2024-148039

PATIENT
  Age: 90 Year
  Sex: Female

DRUGS (1)
  1. ELIQUIS [Suspect]
     Active Substance: APIXABAN
     Indication: Atrial fibrillation
     Route: 048

REACTIONS (2)
  - Cardiac arrest [Fatal]
  - Stress [Unknown]

NARRATIVE: CASE EVENT DATE: 20240827
